FAERS Safety Report 4976797-9 (Version None)
Quarter: 2006Q2

REPORT INFORMATION
  Report Type: 
  Country: None (occurrence: None)
  Receive Date: 20060413
  Receipt Date: 20060330
  Transmission Date: 20061013
  Serious: Yes (Death, Hospitalization)
  Sender: FDA-Public Use
  Company Number: 2006-BP-03756RO

PATIENT
  Age: 83 Year
  Sex: Female

DRUGS (1)
  1. ALPRAZOLAM [Suspect]

REACTIONS (4)
  - BRONCHOPNEUMONIA [None]
  - DRUG ABUSER [None]
  - DRUG TOXICITY [None]
  - SUICIDE ATTEMPT [None]
